FAERS Safety Report 5077937-6 (Version None)
Quarter: 2006Q3

REPORT INFORMATION
  Report Type: 
  Country: None (occurrence: None)
  Receive Date: 20060811
  Receipt Date: 20060203
  Transmission Date: 20061208
  Serious: Yes (Other)
  Sender: FDA-Public Use
  Company Number: SE-AVENTIS-200611179GDDC

PATIENT
  Age: 8 Year
  Sex: Male
  Weight: 30.5 kg

DRUGS (3)
  1. APIDRA [Suspect]
     Indication: DIABETES MELLITUS INSULIN-DEPENDENT
     Route: 058
     Dates: start: 20050916
  2. OPTIPEN (INSULIN PUMP) [Suspect]
     Indication: DIABETES MELLITUS INSULIN-DEPENDENT
  3. INSULATARD NPH HUMAN [Suspect]
     Indication: DIABETES MELLITUS
     Dates: start: 20040920

REACTIONS (3)
  - CONDITION AGGRAVATED [None]
  - CONVULSION [None]
  - EPILEPSY [None]
